FAERS Safety Report 15554196 (Version 2)
Quarter: 2019Q1

REPORT INFORMATION
  Report Type: Spontaneous
  Country: US (occurrence: US)
  Receive Date: 20181026
  Receipt Date: 20190325
  Transmission Date: 20190417
  Serious: No
  Sender: FDA-Public Use
  Company Number: US-PFIZER INC-2018426621

PATIENT
  Age: 50 Year
  Sex: Female

DRUGS (1)
  1. IBUPROFEN. [Suspect]
     Active Substance: IBUPROFEN
     Indication: PAIN
     Dosage: 600 MG, AS NEEDED (Q 6 HR PRN PAIN)
     Route: 048
     Dates: start: 20080911, end: 20170228

REACTIONS (2)
  - Drug hypersensitivity [Unknown]
  - Tremor [Recovered/Resolved]
